FAERS Safety Report 18118894 (Version 1)
Quarter: 2020Q3

REPORT INFORMATION
  Report Type: Spontaneous
  Country: CA (occurrence: CA)
  Receive Date: 20200806
  Receipt Date: 20200806
  Transmission Date: 20201103
  Serious: Yes (Life-Threatening, Hospitalization, Other)
  Sender: FDA-Public Use
  Company Number: CA-PFIZER INC-2020296335

PATIENT
  Age: 56 Year
  Sex: Female
  Weight: 94 kg

DRUGS (21)
  1. DILANTIN [Suspect]
     Active Substance: PHENYTOIN
     Indication: EPILEPSY
     Dosage: 200 MG, 1X/DAY
     Route: 048
  2. COUMADIN [Suspect]
     Active Substance: WARFARIN SODIUM
     Dosage: 7 MG, 1X/DAY
     Route: 048
  3. CEPHALEXIN [CEFALEXIN] [Concomitant]
     Active Substance: CEPHALEXIN
  4. CLONAZEPAM. [Concomitant]
     Active Substance: CLONAZEPAM
  5. PREMARIN [Concomitant]
     Active Substance: ESTROGENS, CONJUGATED
  6. COUMADIN [Suspect]
     Active Substance: WARFARIN SODIUM
     Indication: DEEP VEIN THROMBOSIS
     Dosage: 5 MG, 1X/DAY
     Route: 048
  7. FLECAINIDE [Concomitant]
     Active Substance: FLECAINIDE
  8. OXYBUTYNIN. [Concomitant]
     Active Substance: OXYBUTYNIN CHLORIDE
  9. SYNTHROID [Concomitant]
     Active Substance: LEVOTHYROXINE SODIUM
  10. LAMOTRIGINE. [Concomitant]
     Active Substance: LAMOTRIGINE
  11. NOVORAPID [Concomitant]
     Active Substance: INSULIN ASPART
  12. PANTOPRAZOLE [Concomitant]
     Active Substance: PANTOPRAZOLE
  13. VENLAFAXINE XR [Concomitant]
     Active Substance: VENLAFAXINE HYDROCHLORIDE
  14. BASAGLAR [Concomitant]
     Active Substance: INSULIN GLARGINE
  15. METOPROLOL. [Concomitant]
     Active Substance: METOPROLOL
  16. DILANTIN [Suspect]
     Active Substance: PHENYTOIN
     Dosage: 300 MG, 1X/DAY
     Route: 048
  17. ENALAPRIL [Concomitant]
     Active Substance: ENALAPRIL
  18. DILANTIN [Suspect]
     Active Substance: PHENYTOIN
     Dosage: 300 MG, 1X/DAY
     Route: 048
  19. COUMADIN [Suspect]
     Active Substance: WARFARIN SODIUM
     Dosage: 8 MG, 1X/DAY
     Route: 048
  20. FUROSEMIDE. [Concomitant]
     Active Substance: FUROSEMIDE
  21. RISPERIDONE. [Concomitant]
     Active Substance: RISPERIDONE

REACTIONS (6)
  - Abdominal pain [Recovered/Resolved]
  - Faeces discoloured [Recovered/Resolved]
  - Lower gastrointestinal haemorrhage [Recovered/Resolved]
  - Dizziness [Recovered/Resolved]
  - Haematochezia [Recovered/Resolved]
  - Presyncope [Recovered/Resolved]
